FAERS Safety Report 8373905-7 (Version None)
Quarter: 2012Q2

REPORT INFORMATION
  Report Type: 
  Country: None (occurrence: None)
  Receive Date: 20120521
  Receipt Date: 20120515
  Transmission Date: 20120825
  Serious: Yes (Hospitalization)
  Sender: FDA-Public Use
  Company Number: DE-ROCHE-1070160

PATIENT
  Age: 68 Year
  Sex: Female

DRUGS (6)
  1. METHOTREXATE [Concomitant]
     Dates: start: 20000101, end: 20091101
  2. LEVOTHYROXINE SODIUM [Concomitant]
  3. IRBESARTAN [Concomitant]
  4. SYNTESTAN [Concomitant]
     Dates: start: 20050501
  5. ACTEMRA [Suspect]
     Dates: start: 20110823
  6. ACTEMRA [Suspect]
     Indication: PRODUCT USED FOR UNKNOWN INDICATION
     Dosage: CUMULATIVE DOSIS OF TOCILIZUMAB 9600 MG
     Dates: start: 20090501, end: 20110401

REACTIONS (1)
  - HYDROCEPHALUS [None]
